FAERS Safety Report 6173758-1 (Version None)
Quarter: 2009Q2

REPORT INFORMATION
  Report Type: 
  Country: None (occurrence: None)
  Receive Date: 20090430
  Receipt Date: 20090428
  Transmission Date: 20091009
  Serious: Yes (Death, Other)
  Sender: FDA-Public Use
  Company Number: PHHY2009JP16131

PATIENT
  Age: 89 Year
  Sex: Female

DRUGS (8)
  1. EXJADE [Suspect]
     Indication: IRON OVERLOAD
     Dosage: 500 MG DAILY
     Route: 048
     Dates: start: 20081205, end: 20081223
  2. ALLELOCK [Concomitant]
     Dosage: 10MG
     Route: 048
     Dates: start: 20081009, end: 20090127
  3. CINAL [Concomitant]
     Dosage: 3G
     Route: 048
     Dates: start: 20070809, end: 20090127
  4. ISALON [Concomitant]
     Dosage: 300MG
     Route: 048
     Dates: start: 20081101, end: 20090127
  5. ADONA [Concomitant]
     Dosage: 10MG
     Route: 048
     Dates: start: 20081101, end: 20090127
  6. BAKTAR [Concomitant]
     Dosage: 4G
     Dates: start: 20081101, end: 20090127
  7. TAKEPRON [Concomitant]
     Dosage: 300MG
     Dates: start: 20081101, end: 20090127
  8. HALCION [Suspect]
     Dosage: 0.25MG
     Dates: start: 20081101, end: 20090127

REACTIONS (2)
  - PANCYTOPENIA [None]
  - PNEUMONIA [None]
